FAERS Safety Report 7478336-X (Version None)
Quarter: 2011Q2

REPORT INFORMATION
  Report Type: 
  Country: None (occurrence: None)
  Receive Date: 20110506
  Receipt Date: 20110421
  Transmission Date: 20111010
  Serious: Yes (Death, Other)
  Sender: FDA-Public Use
  Company Number: JPI-P-014785

PATIENT
  Age: 59 Year
  Sex: Male

DRUGS (1)
  1. XYREM [Suspect]
     Indication: PRODUCT USED FOR UNKNOWN INDICATION
     Dosage: 4.5 GM (2.25 GM, 2 IN 1 D), ORAL
     Route: 048
     Dates: start: 20030709, end: 20030701

REACTIONS (2)
  - POST PROCEDURAL COMPLICATION [None]
  - CARDIAC OPERATION [None]
